FAERS Safety Report 18649334 (Version 1)
Quarter: 2020Q4

REPORT INFORMATION
  Report Type: Spontaneous
  Country: US (occurrence: US)
  Receive Date: 20201222
  Receipt Date: 20201222
  Transmission Date: 20210114
  Serious: Yes (Hospitalization)
  Sender: FDA-Public Use
  Company Number: None

PATIENT
  Age: 56 Year
  Sex: Female

DRUGS (1)
  1. CAPECITABINE. [Suspect]
     Active Substance: CAPECITABINE
     Indication: BREAST CANCER
     Dosage: ?          OTHER FREQUENCY:Q AM AND Q PM;?
     Route: 048
     Dates: start: 20200923

REACTIONS (1)
  - Metastasis [None]

NARRATIVE: CASE EVENT DATE: 20201221
